FAERS Safety Report 9871354 (Version 2)
Quarter: 2014Q1

REPORT INFORMATION
  Report Type: Spontaneous
  Country: JP (occurrence: JP)
  Receive Date: 20140205
  Receipt Date: 20140321
  Transmission Date: 20141002
  Serious: Yes (Other)
  Sender: FDA-Public Use
  Company Number: PHJP2014JP000507

PATIENT
  Age: 71 Year
  Sex: Female

DRUGS (1)
  1. TEGRETOL TAB 200MG [Suspect]
     Dosage: UNK UKN, UNK
     Route: 048

REACTIONS (1)
  - Interstitial lung disease [Unknown]
